FAERS Safety Report 10120646 (Version 2)
Quarter: 2014Q4

REPORT INFORMATION
  Report Type: Other
  Country: US (occurrence: US)
  Receive Date: 20140425
  Receipt Date: 20141020
  Transmission Date: 20150528
  Serious: Yes (Hospitalization, Other)
  Sender: FDA-Public Use
  Company Number: US-GSKPPD-2014GSK007124

PATIENT
  Age: 54 Year
  Sex: Male

DRUGS (10)
  1. PLENDIL [Concomitant]
     Active Substance: FELODIPINE
  2. AMIODARONE [Concomitant]
     Active Substance: AMIODARONE
  3. LANOXIN [Concomitant]
     Active Substance: DIGOXIN
  4. IMDUR SR [Concomitant]
  5. VASOTEC [Concomitant]
     Active Substance: ENALAPRIL MALEATE
  6. LASIX [Concomitant]
     Active Substance: FUROSEMIDE
  7. LOPRESSOR [Concomitant]
     Active Substance: METOPROLOL TARTRATE
  8. ALDACTONE [Concomitant]
     Active Substance: SPIRONOLACTONE
  9. AVANDIA [Suspect]
     Active Substance: ROSIGLITAZONE MALEATE
     Indication: DIABETES MELLITUS
     Dosage: AVANDIA WAS NOT LISTED AMONG THE PATIENTS DISCHARGE RECORDS.
     Route: 048
  10. LISINOPRIL. [Concomitant]
     Active Substance: LISINOPRIL

REACTIONS (2)
  - Cardiac arrest [Recovered/Resolved]
  - Myocardial infarction [Unknown]

NARRATIVE: CASE EVENT DATE: 20060519
